FAERS Safety Report 8369703-0 (Version None)
Quarter: 2012Q2

REPORT INFORMATION
  Report Type: 
  Country: None (occurrence: None)
  Receive Date: 20120518
  Receipt Date: 20120510
  Transmission Date: 20120825
  Serious: Yes (Other)
  Sender: FDA-Public Use
  Company Number: US-BRISTOL-MYERS SQUIBB COMPANY-16583809

PATIENT
  Age: 44 Year
  Sex: Female

DRUGS (1)
  1. KOMBIGLYZE XR [Suspect]
     Indication: TYPE 2 DIABETES MELLITUS
     Dosage: 1DF=2 PILLS OF 2.5MG/1000MG

REACTIONS (1)
  - PANCREATITIS [None]
